FAERS Safety Report 17033166 (Version 2)
Quarter: 2020Q3

REPORT INFORMATION
  Report Type: Report from Study
  Country: US (occurrence: US)
  Receive Date: 20191114
  Receipt Date: 20200818
  Transmission Date: 20201102
  Serious: No
  Sender: FDA-Public Use
  Company Number: US-SA-2019SA306858

PATIENT

DRUGS (4)
  1. DUPILUMAB [Suspect]
     Active Substance: DUPILUMAB
     Indication: RASH
  2. DUPILUMAB [Suspect]
     Active Substance: DUPILUMAB
     Indication: DERMATITIS ATOPIC
     Dosage: UNK, 1X
     Dates: start: 201909, end: 201909
  3. DUPILUMAB [Suspect]
     Active Substance: DUPILUMAB
     Indication: BREAST CANCER FEMALE
     Dosage: 300 MG, QOW
     Route: 058
     Dates: start: 2019, end: 202003
  4. DUPILUMAB [Suspect]
     Active Substance: DUPILUMAB
     Indication: HORMONE RECEPTOR POSITIVE BREAST CANCER

REACTIONS (3)
  - Dermatitis atopic [Unknown]
  - Decreased immune responsiveness [Unknown]
  - Off label use [Unknown]
